FAERS Safety Report 9434736 (Version 2)
Quarter: 2013Q3

REPORT INFORMATION
  Report Type: Spontaneous
  Country: US (occurrence: US)
  Receive Date: 20130801
  Receipt Date: 20130813
  Transmission Date: 20140515
  Serious: No
  Sender: FDA-Public Use
  Company Number: US-PFIZER INC-2013202444

PATIENT
  Age: 71 Year
  Sex: Female

DRUGS (2)
  1. ELIQUIS [Suspect]
     Indication: ATRIAL FIBRILLATION
     Dosage: 5 MG, 2X/DAY
     Route: 048
     Dates: start: 20130617, end: 20130708
  2. AMIODARONE HCL [Suspect]
     Dosage: UNK
     Dates: start: 20130617

REACTIONS (2)
  - Abdominal discomfort [Unknown]
  - Dizziness [Unknown]
